FAERS Safety Report 20161708 (Version 1)
Quarter: 2021Q4

REPORT INFORMATION
  Report Type: Spontaneous
  Country: SE (occurrence: SE)
  Receive Date: 20211208
  Receipt Date: 20211208
  Transmission Date: 20220304
  Serious: Yes (Hospitalization, Disabling)
  Sender: FDA-Public Use
  Company Number: None

PATIENT
  Age: 69 Year
  Sex: Male
  Weight: 93 kg

DRUGS (5)
  1. RINVOQ [Suspect]
     Active Substance: UPADACITINIB
     Indication: Psoriatic arthropathy
     Route: 048
     Dates: start: 20210511, end: 20210824
  2. RINVOQ [Suspect]
     Active Substance: UPADACITINIB
     Indication: Axial spondyloarthritis
  3. VAXZEVRIA [Suspect]
     Active Substance: AZD-1222
     Indication: COVID-19 immunisation
     Dosage: DOS 2
     Route: 065
     Dates: start: 20210715, end: 20210715
  4. ASPIRIN [Concomitant]
     Active Substance: ASPIRIN
     Indication: Product used for unknown indication
     Dates: start: 20131128, end: 20211028
  5. GLYTRIN [Concomitant]
     Indication: Product used for unknown indication
     Dosage: 1 SPRAYDOS VID BEHOV UNDER TUNGAN.?0.4 MG/DOSE
     Dates: start: 20131130

REACTIONS (1)
  - Ophthalmic artery thrombosis [Not Recovered/Not Resolved]

NARRATIVE: CASE EVENT DATE: 20210726
